FAERS Safety Report 5647897-5 (Version None)
Quarter: 2008Q1

REPORT INFORMATION
  Report Type: 
  Country: None (occurrence: None)
  Receive Date: 20080228
  Receipt Date: 20080215
  Transmission Date: 20080703
  Serious: Yes (Hospitalization)
  Sender: FDA-Public Use
  Company Number: TRP_01002_2007

PATIENT
  Sex: Female
  Weight: 72.5755 kg

DRUGS (7)
  1. RIBASPHERE [Suspect]
     Indication: HEPATITIS C
     Dosage: 1000 MG QD ORAL
     Route: 048
     Dates: start: 20071017, end: 20071026
  2. PEG-INTRON [Suspect]
     Indication: HEPATITIS C
     Dosage: 96 ?G 1X/WEEK SUBCUTANEOUS
     Route: 058
     Dates: start: 20071017, end: 20071024
  3. SYNTHROID [Concomitant]
  4. NORVASC [Concomitant]
  5. TYLENOL (CAPLET) [Concomitant]
  6. MONOPRIL [Concomitant]
  7. AMOXICILLIN [Concomitant]

REACTIONS (24)
  - ALANINE AMINOTRANSFERASE INCREASED [None]
  - BLOOD BILIRUBIN INCREASED [None]
  - BLOOD CALCIUM DECREASED [None]
  - BLOOD CHLORIDE DECREASED [None]
  - BLOOD CREATINE DECREASED [None]
  - BLOOD CREATINE PHOSPHOKINASE INCREASED [None]
  - BLOOD POTASSIUM DECREASED [None]
  - CARBON DIOXIDE DECREASED [None]
  - ELECTROCARDIOGRAM ST SEGMENT ABNORMAL [None]
  - GLUCOSE URINE PRESENT [None]
  - GRAND MAL CONVULSION [None]
  - HYDRONEPHROSIS [None]
  - HYPERGLYCAEMIA [None]
  - HYPONATRAEMIA [None]
  - LOSS OF CONSCIOUSNESS [None]
  - MUSCULOSKELETAL DISCOMFORT [None]
  - MYOCLONUS [None]
  - NEPHROLITHIASIS [None]
  - PROTEIN TOTAL INCREASED [None]
  - RENAL CYST [None]
  - SINUS ARRHYTHMIA [None]
  - URINE KETONE BODY PRESENT [None]
  - WATER INTOXICATION [None]
  - WHITE BLOOD CELL COUNT INCREASED [None]
